FAERS Safety Report 18768443 (Version 1)
Quarter: 2021Q1

REPORT INFORMATION
  Report Type: Spontaneous
  Country: US (occurrence: US)
  Receive Date: 20210121
  Receipt Date: 20210121
  Transmission Date: 20210419
  Serious: Yes (Life-Threatening, Hospitalization, Disabling)
  Sender: FDA-Public Use
  Company Number: None

PATIENT
  Age: 72 Year
  Sex: Female
  Weight: 53.1 kg

DRUGS (5)
  1. ERYTHROMYCIN. [Concomitant]
     Active Substance: ERYTHROMYCIN
  2. VITAMIN B12 [Suspect]
     Active Substance: CYANOCOBALAMIN
  3. ZANTAC [Suspect]
     Active Substance: RANITIDINE HYDROCHLORIDE
     Indication: GASTROOESOPHAGEAL REFLUX DISEASE
     Dosage: ?          QUANTITY:1 TABLET(S);?
     Route: 048
  4. MIRALAX [Concomitant]
     Active Substance: POLYETHYLENE GLYCOL 3350
  5. LACTULOSE. [Concomitant]
     Active Substance: LACTULOSE

REACTIONS (2)
  - Breast cancer [None]
  - Adverse drug reaction [None]

NARRATIVE: CASE EVENT DATE: 19901019
